FAERS Safety Report 5464453-2 (Version None)
Quarter: 2007Q3

REPORT INFORMATION
  Report Type: 
  Country: None (occurrence: None)
  Receive Date: 20070921
  Receipt Date: 20070911
  Transmission Date: 20080115
  Serious: Yes (Other)
  Sender: FDA-Public Use
  Company Number: ZA-AVENTIS-200718405GDDC

PATIENT
  Age: 69 Year
  Sex: Female

DRUGS (6)
  1. ARAVA [Suspect]
     Route: 048
  2. METHOTREXATE [Concomitant]
     Route: 048
  3. SALAZOPYRIN [Concomitant]
     Dosage: DOSE: UNK
     Route: 048
  4. KETOFLAM [Concomitant]
     Dosage: DOSE: UNK
     Route: 048
  5. IRBESARTAN [Concomitant]
     Indication: HYPERTENSION
     Dosage: DOSE: UNK
     Route: 048
  6. DUOVENT [Concomitant]

REACTIONS (1)
  - RETINAL DETACHMENT [None]
